FAERS Safety Report 7413006-5 (Version None)
Quarter: 2011Q2

REPORT INFORMATION
  Report Type: 
  Country: None (occurrence: None)
  Receive Date: 20110413
  Receipt Date: 20110404
  Transmission Date: 20111010
  Serious: Yes (Other)
  Sender: FDA-Public Use
  Company Number: PHHY2011JP27814

PATIENT
  Age: 37 Year
  Sex: Male
  Weight: 63.9 kg

DRUGS (5)
  1. METHYLPREDNISOLONE [Suspect]
     Indication: POLYSEROSITIS
     Dosage: 0.5 G/DAY
  2. PREDNISOLONE [Concomitant]
     Dosage: 25 MG/DAY
     Route: 042
  3. PREDNISOLONE [Concomitant]
     Dosage: 40 MG/DAY
     Route: 042
  4. PREDNISOLONE [Concomitant]
     Dosage: 60 MG/DAY
     Route: 042
  5. PREDNISOLONE [Concomitant]
     Indication: POLYSEROSITIS
     Dosage: 60 MG/DAY
     Route: 042

REACTIONS (10)
  - THROMBOTIC MICROANGIOPATHY [None]
  - HAEMOGLOBIN DECREASED [None]
  - LUNG INFILTRATION [None]
  - ASTHENIA [None]
  - PLEURAL EFFUSION [None]
  - LETHARGY [None]
  - DECREASED APPETITE [None]
  - PLATELET COUNT DECREASED [None]
  - BLOOD LACTATE DEHYDROGENASE INCREASED [None]
  - COUGH [None]
